FAERS Safety Report 9974421 (Version 1)
Quarter: 2014Q1

REPORT INFORMATION
  Report Type: Report from Study
  Country: US (occurrence: US)
  Receive Date: 20140306
  Receipt Date: 20140306
  Transmission Date: 20141002
  Serious: No
  Sender: FDA-Public Use
  Company Number: US-ABBVIE-13P-163-1159070-00

PATIENT
  Age: 79 Year
  Sex: Male

DRUGS (5)
  1. HUMIRA [Suspect]
     Indication: COLITIS ULCERATIVE
     Dates: start: 20131002, end: 20131002
  2. HUMIRA [Suspect]
     Dates: start: 20131003, end: 20131003
  3. HUMIRA [Suspect]
     Dates: start: 20131016, end: 20131016
  4. HUMIRA [Suspect]
  5. ASACOL [Concomitant]
     Indication: COLITIS ULCERATIVE

REACTIONS (1)
  - Drug ineffective [Not Recovered/Not Resolved]
